FAERS Safety Report 11628083 (Version 1)
Quarter: 2015Q4

REPORT INFORMATION
  Report Type: Spontaneous
  Country: US (occurrence: None)
  Receive Date: 20151013
  Receipt Date: 20151013
  Transmission Date: 20160304
  Serious: No
  Sender: FDA-Public Use
  Company Number: None

PATIENT
  Age: 33 Year
  Sex: Female
  Weight: 88 kg

DRUGS (6)
  1. IBUPROFEN. [Concomitant]
     Active Substance: IBUPROFEN
  2. METHYLDOPA. [Concomitant]
     Active Substance: METHYLDOPA
  3. KRILL OIL [Concomitant]
     Active Substance: DIETARY SUPPLEMENT
  4. TYLENOL [Concomitant]
     Active Substance: ACETAMINOPHEN
  5. PRENATAL MULTIVITAMIN [Concomitant]
  6. METHYLDOPA. [Suspect]
     Active Substance: METHYLDOPA
     Indication: HYPERTENSION
     Route: 048
     Dates: start: 20150819, end: 20151009

REACTIONS (2)
  - Thirst [None]
  - Tourette^s disorder [None]

NARRATIVE: CASE EVENT DATE: 20150819
